FAERS Safety Report 11083174 (Version 2)
Quarter: 2015Q3

REPORT INFORMATION
  Report Type: Spontaneous
  Country: US (occurrence: US)
  Receive Date: 20150501
  Receipt Date: 20150721
  Transmission Date: 20151125
  Serious: No
  Sender: FDA-Public Use
  Company Number: US-PFIZER INC-2015143310

PATIENT
  Age: 44 Year
  Sex: Female
  Weight: 68 kg

DRUGS (5)
  1. NORFLEX PLUS [Concomitant]
     Indication: PAIN
     Dosage: ORPHENADRINE CITRATE 35 MG/PARACETAMOL 450 MG, 2X/DAY (2 TABLETS IN MORNING AND 2 AT NIGHT)
     Route: 048
     Dates: start: 20120921
  2. LYRICA [Suspect]
     Active Substance: PREGABALIN
     Dosage: 75 MG, 2X/DAY
     Dates: start: 20120921
  3. LYRICA [Suspect]
     Active Substance: PREGABALIN
     Indication: FIBROMYALGIA
     Dosage: 150 MG, 2X/DAY (ONE IN MORNING AND ONE AT NIGHT)
     Route: 048
     Dates: start: 201209
  4. NORFLEX PLUS [Concomitant]
     Indication: MYALGIA
  5. NORFLEX PLUS [Concomitant]
     Indication: FEELING OF RELAXATION

REACTIONS (4)
  - Headache [Not Recovered/Not Resolved]
  - Myalgia [Not Recovered/Not Resolved]
  - Nervousness [Not Recovered/Not Resolved]
  - Insomnia [Not Recovered/Not Resolved]

NARRATIVE: CASE EVENT DATE: 20150412
